FAERS Safety Report 22645907 (Version 3)
Quarter: 2024Q1

REPORT INFORMATION
  Report Type: Spontaneous
  Country: US (occurrence: US)
  Receive Date: 20230627
  Receipt Date: 20240108
  Transmission Date: 20240409
  Serious: No
  Sender: FDA-Public Use
  Company Number: US-INCYTE CORPORATION-2023IN006476

PATIENT

DRUGS (3)
  1. JAKAFI [Suspect]
     Active Substance: RUXOLITINIB
     Indication: Myeloproliferative neoplasm
     Dosage: 10MG TWICE DAILY ON MONDAY AND THURSDAY, 10MG ONCE DAILY ALL OTHER DAYS OF THE WEEK
     Route: 048
     Dates: start: 20210901
  2. JAKAFI [Suspect]
     Active Substance: RUXOLITINIB
     Dosage: 10MG TWICE DAILY ON MONDAYS AND THURSDAYS. 10MG ONCE DAILY ALL OTHER DAYS
     Route: 048
     Dates: start: 20210901
  3. JAKAFI [Suspect]
     Active Substance: RUXOLITINIB
     Dosage: 10MG BID ON MON AND THU, THEN 10MG QD ALL OTHER DAYS OF WEEK
     Route: 048
     Dates: start: 20210901

REACTIONS (5)
  - Back pain [Unknown]
  - Off label use [Unknown]
  - Nail growth abnormal [Unknown]
  - Fine motor skill dysfunction [Unknown]
  - Neuralgia [Not Recovered/Not Resolved]

NARRATIVE: CASE EVENT DATE: 20210901
